FAERS Safety Report 4405084-2 (Version None)
Quarter: 2004Q3

REPORT INFORMATION
  Report Type: 
  Country: None (occurrence: None)
  Receive Date: 20040715
  Receipt Date: 20040629
  Transmission Date: 20050211
  Serious: Yes (Hospitalization)
  Sender: FDA-Public Use
  Company Number: 171114

PATIENT
  Age: 57 Year
  Sex: Female
  Weight: 54.8852 kg

DRUGS (5)
  1. AVONEX [Suspect]
     Indication: MULTIPLE SCLEROSIS
     Dosage: 30 MCG QW IM
     Route: 030
     Dates: start: 19990101, end: 20030101
  2. AVONEX [Suspect]
     Indication: MULTIPLE SCLEROSIS
     Dosage: 30 MCG QW IM
     Route: 030
     Dates: start: 20030101
  3. LISINOPRIL [Concomitant]
  4. OXYCODONE HCL [Concomitant]
  5. PREMARIN [Concomitant]

REACTIONS (12)
  - ARTHRITIS [None]
  - CHRONIC OBSTRUCTIVE AIRWAYS DISEASE EXACERBATED [None]
  - CONDITION AGGRAVATED [None]
  - DYSPHAGIA [None]
  - DYSPNOEA EXACERBATED [None]
  - HAEMATOCHEZIA [None]
  - HYPOTENSION [None]
  - LUNG DISORDER [None]
  - MUSCULAR WEAKNESS [None]
  - MYALGIA [None]
  - POSTOPERATIVE ADHESION [None]
  - SCAR [None]
